FAERS Safety Report 8079106-4 (Version None)
Quarter: 2012Q1

REPORT INFORMATION
  Report Type: 
  Country: None (occurrence: None)
  Receive Date: 20120128
  Receipt Date: 20110817
  Transmission Date: 20120608
  Serious: No
  Sender: FDA-Public Use
  Company Number: US-ABBOTT-11P-163-0847721-00

PATIENT
  Sex: Female
  Weight: 81.72 kg

DRUGS (2)
  1. BENADRYL [Suspect]
     Indication: INJECTION SITE PRURITUS
  2. HUMIRA [Suspect]
     Indication: PSORIATIC ARTHROPATHY
     Dates: start: 20110526

REACTIONS (6)
  - INJECTION SITE REACTION [None]
  - SOMNOLENCE [None]
  - INJECTION SITE PRURITUS [None]
  - INJECTION SITE URTICARIA [None]
  - INJECTION SITE PAIN [None]
  - INJECTION SITE SWELLING [None]
